FAERS Safety Report 7421957-0 (Version None)
Quarter: 2011Q2

REPORT INFORMATION
  Report Type: 
  Country: None (occurrence: None)
  Receive Date: 20110418
  Receipt Date: 20110413
  Transmission Date: 20111010
  Serious: Yes (Hospitalization)
  Sender: FDA-Public Use
  Company Number: US-ELI_LILLY_AND_COMPANY-US201103004025

PATIENT
  Sex: Female

DRUGS (3)
  1. HUMALOG MIX 75/25 [Suspect]
     Dosage: 75 U, 2/D
     Dates: start: 20090101
  2. HUMALOG MIX 75/25 [Suspect]
     Indication: DIABETES MELLITUS
     Dosage: 75 U, 2/D
     Dates: start: 20090101
  3. HUMALOG MIX 75/25 [Suspect]
     Dosage: 75 U, 2/D
     Dates: start: 20090101

REACTIONS (4)
  - ABDOMINAL PAIN UPPER [None]
  - FEELING JITTERY [None]
  - ASTHENIA [None]
  - CONSTIPATION [None]
